FAERS Safety Report 5975666-5 (Version None)
Quarter: 2008Q4

REPORT INFORMATION
  Report Type: 
  Country: None (occurrence: None)
  Receive Date: 20081202
  Receipt Date: 20081121
  Transmission Date: 20090506
  Serious: Yes (Hospitalization)
  Sender: FDA-Public Use
  Company Number: PHHY2008GR29306

PATIENT
  Sex: Male

DRUGS (6)
  1. DALZAD [Suspect]
     Indication: HYPERTENSION
     Dosage: 320 MG (1X1)
     Route: 048
     Dates: start: 20081007
  2. DILATREND [Concomitant]
  3. ACTOS [Concomitant]
  4. LASIX [Concomitant]
  5. GLUCOPHAGE [Concomitant]
  6. COLCHICINE [Concomitant]

REACTIONS (2)
  - BIOPSY [None]
  - VASCULITIS [None]
